FAERS Safety Report 7071282-5 (Version None)
Quarter: 2010Q4

REPORT INFORMATION
  Report Type: 
  Country: None (occurrence: None)
  Receive Date: 20101028
  Receipt Date: 20101028
  Transmission Date: 20110411
  Serious: Yes (Other)
  Sender: FDA-Public Use
  Company Number: None

PATIENT
  Age: 54 Year
  Sex: Female
  Weight: 43.6 kg

DRUGS (2)
  1. ACTONEL [Suspect]
     Indication: OSTEOPENIA
     Dosage: 150MG ONCE/MONTH ORAL
     Route: 048
     Dates: start: 20100615
  2. ACTONEL [Suspect]
     Indication: OSTEOPOROSIS
     Dosage: 150MG ONCE/MONTH ORAL
     Route: 048
     Dates: start: 20100615

REACTIONS (4)
  - ARTHRALGIA [None]
  - BONE PAIN [None]
  - IRITIS [None]
  - UVEITIS [None]
